FAERS Safety Report 23797545 (Version 4)
Quarter: 2024Q2

REPORT INFORMATION
  Report Type: Spontaneous
  Country: US (occurrence: US)
  Receive Date: 20240430
  Receipt Date: 20240515
  Transmission Date: 20240716
  Serious: Yes (Other)
  Sender: FDA-Public Use
  Company Number: US-ABBVIE-5737175

PATIENT
  Sex: Female
  Weight: 73 kg

DRUGS (6)
  1. BOTOX [Suspect]
     Active Substance: ONABOTULINUMTOXINA
     Indication: Meige^s syndrome
     Dosage: TIME INTERVAL: AS NECESSARY: FREQUENCY: EVERY THREE MONTHS
     Route: 030
     Dates: start: 1990, end: 1990
  2. METFORMIN [Concomitant]
     Active Substance: METFORMIN HYDROCHLORIDE
     Indication: Polycystic ovarian syndrome
  3. XOPENEX [Concomitant]
     Active Substance: LEVALBUTEROL HYDROCHLORIDE
     Indication: Asthma
  4. MESTINON [Suspect]
     Active Substance: PYRIDOSTIGMINE BROMIDE
     Indication: Myasthenia gravis
     Route: 065
     Dates: start: 202303
  5. ALVESCO [Concomitant]
     Active Substance: CICLESONIDE
     Indication: Asthma
  6. IRON [Concomitant]
     Active Substance: IRON
     Indication: Mineral supplementation

REACTIONS (18)
  - Blindness [Not Recovered/Not Resolved]
  - Myasthenia gravis [Recovering/Resolving]
  - Dysphonia [Recovering/Resolving]
  - Product use in unapproved indication [Unknown]
  - Muscle spasms [Not Recovered/Not Resolved]
  - Blepharospasm [Unknown]
  - Drug interaction [Not Recovered/Not Resolved]
  - Muscle fatigue [Recovering/Resolving]
  - Eyelid function disorder [Recovering/Resolving]
  - Facial spasm [Unknown]
  - Asthenia [Recovering/Resolving]
  - Drug specific antibody absent [Unknown]
  - Reading disorder [Not Recovered/Not Resolved]
  - Meige^s syndrome [Not Recovered/Not Resolved]
  - Impaired driving ability [Not Recovered/Not Resolved]
  - Loss of personal independence in daily activities [Not Recovered/Not Resolved]
  - Dysphagia [Recovering/Resolving]
  - Muscular weakness [Recovering/Resolving]

NARRATIVE: CASE EVENT DATE: 20160101
